FAERS Safety Report 7378636-8 (Version None)
Quarter: 2011Q1

REPORT INFORMATION
  Report Type: 
  Country: None (occurrence: None)
  Receive Date: 20110323
  Receipt Date: 20110323
  Transmission Date: 20110831
  Serious: Yes (Other)
  Sender: FDA-Public Use
  Company Number: None

PATIENT
  Sex: Male
  Weight: 74.8435 kg

DRUGS (1)
  1. NUVIGIL [Suspect]
     Indication: SLEEP APNOEA SYNDROME
     Dosage: ONE PILL ONCE EVERY MORNING PO
     Route: 048
     Dates: start: 20090222, end: 20100427

REACTIONS (6)
  - DEPRESSION [None]
  - LETHARGY [None]
  - PARKINSON'S DISEASE [None]
  - BLOOD PRESSURE FLUCTUATION [None]
  - SUICIDAL IDEATION [None]
  - ASTHENIA [None]
